FAERS Safety Report 11588060 (Version 1)
Quarter: 2015Q4

REPORT INFORMATION
  Report Type: Spontaneous
  Country: US (occurrence: US)
  Receive Date: 20151002
  Receipt Date: 20151002
  Transmission Date: 20160304
  Serious: Yes (Hospitalization)
  Sender: FDA-Public Use
  Company Number: PHHY2015US116707

PATIENT
  Age: 42 Year
  Sex: Female

DRUGS (3)
  1. CIMETIDINE [Suspect]
     Active Substance: CIMETIDINE
     Indication: PRODUCT USED FOR UNKNOWN INDICATION
     Dosage: UNK UNK, QD (6 TABLETS)
     Route: 048
  2. LOPERAMIDE [Suspect]
     Active Substance: LOPERAMIDE
     Dosage: 140 MG, QD (FOR ONE WEEK)
     Route: 065
  3. LOPERAMIDE [Suspect]
     Active Substance: LOPERAMIDE
     Indication: PAIN
     Dosage: 120 MG, QD (FOR ONE WEEK)
     Route: 065

REACTIONS (2)
  - Intentional product misuse [Recovered/Resolved]
  - Drug withdrawal syndrome [Recovered/Resolved]
